FAERS Safety Report 8889415 (Version 2)
Quarter: 2012Q4

REPORT INFORMATION
  Report Type: 
  Country: US (occurrence: None)
  Receive Date: 20121107
  Receipt Date: 20121127
  Transmission Date: 20130627
  Serious: Yes (Hospitalization)
  Sender: FDA-Public Use
  Company Number: None

PATIENT
  Age: 63 Year
  Sex: Female
  Weight: 50.8 kg

DRUGS (3)
  1. ROPIVACAINE [Suspect]
     Dosage: Knee injections 2/13/2012 arthroplasty
  2. KETOROLAC [Suspect]
     Dosage: Knee injections 2/13/2012 arthroplasty
  3. EPINEPHRINE [Suspect]
     Dosage: Knee injections 2/13/2012 arthroplasty

REACTIONS (2)
  - Cellulitis [None]
  - Infection [None]
